FAERS Safety Report 4377501-8 (Version None)
Quarter: 2004Q2

REPORT INFORMATION
  Report Type: 
  Country: None (occurrence: None)
  Receive Date: 20040609
  Receipt Date: 20040511
  Transmission Date: 20050107
  Serious: No
  Sender: FDA-Public Use
  Company Number: 2004212889US

PATIENT
  Age: 45 Year
  Sex: Female

DRUGS (1)
  1. BEXTRA [Suspect]
     Indication: LIGAMENT INJURY
     Dosage: 10 MG, QD
     Dates: start: 20040501

REACTIONS (3)
  - INSOMNIA [None]
  - RASH [None]
  - VAGINAL DISCHARGE [None]
